FAERS Safety Report 13227681 (Version 1)
Quarter: 2017Q1

REPORT INFORMATION
  Report Type: Spontaneous
  Country: US (occurrence: US)
  Receive Date: 20170213
  Receipt Date: 20170213
  Transmission Date: 20170428
  Serious: Yes (Hospitalization)
  Sender: FDA-Public Use
  Company Number: US-MUNDIPHARMA DS AND PHARMACOVIGILANCE-USA-2017-0136586

PATIENT
  Age: 39 Year
  Sex: Female
  Weight: 55.33 kg

DRUGS (4)
  1. BUTRANS [Suspect]
     Active Substance: BUPRENORPHINE
     Indication: ARTHRALGIA
     Dosage: 7.5 MG/HR, WEEKLY
     Route: 062
     Dates: start: 20160727, end: 20160807
  2. HUMIRA [Suspect]
     Active Substance: ADALIMUMAB
     Indication: RHEUMATOID ARTHRITIS
     Dosage: 40 MG, UNK
     Route: 058
     Dates: start: 20160415, end: 20160804
  3. PREDNISONE. [Concomitant]
     Active Substance: PREDNISONE
     Indication: RHEUMATOID ARTHRITIS
     Route: 065
  4. METHOTREXATE. [Concomitant]
     Active Substance: METHOTREXATE
     Indication: RHEUMATOID ARTHRITIS
     Route: 058

REACTIONS (10)
  - Dyspnoea [Unknown]
  - Presyncope [Recovered/Resolved]
  - Urticaria [Recovered/Resolved]
  - Tachycardia [Unknown]
  - Computerised tomogram thorax abnormal [Unknown]
  - Hypotension [Unknown]
  - Pneumonia [Not Recovered/Not Resolved]
  - Lymphadenopathy mediastinal [Unknown]
  - Oropharyngeal pain [Unknown]
  - Dermatitis contact [Recovering/Resolving]

NARRATIVE: CASE EVENT DATE: 2016
